FAERS Safety Report 15926512 (Version 1)
Quarter: 2019Q1

REPORT INFORMATION
  Report Type: Spontaneous
  Country: FR (occurrence: FR)
  Receive Date: 20190206
  Receipt Date: 20190206
  Transmission Date: 20190417
  Serious: Yes (Hospitalization, Other)
  Sender: FDA-Public Use
  Company Number: FR-GLAXOSMITHKLINE-FR2019019776

PATIENT
  Age: 9 Month
  Sex: Male
  Weight: 8 kg

DRUGS (2)
  1. ROCEPHINE [Concomitant]
     Active Substance: CEFTRIAXONE SODIUM
     Indication: PRODUCT USED FOR UNKNOWN INDICATION
     Dosage: UNK
     Route: 065
  2. ZOVIRAX [Suspect]
     Active Substance: ACYCLOVIR
     Indication: PYELONEPHRITIS ACUTE
     Dosage: IN TOTAL
     Route: 040
     Dates: start: 20190109

REACTIONS (4)
  - Medication error [Unknown]
  - Wrong product administered [Unknown]
  - Overdose [Unknown]
  - Acute kidney injury [Recovered/Resolved]

NARRATIVE: CASE EVENT DATE: 20190109
